FAERS Safety Report 11537518 (Version 2)
Quarter: 2015Q3

REPORT INFORMATION
  Report Type: Spontaneous
  Country: JP (occurrence: JP)
  Receive Date: 20150922
  Receipt Date: 20150929
  Transmission Date: 20151125
  Serious: Yes (Other)
  Sender: FDA-Public Use
  Company Number: JP-DEP_12693_2015

PATIENT
  Age: 78 Year
  Sex: Male

DRUGS (2)
  1. OXYCODONE HYDROCHLORIDE (OXYCODONE HYDROCHLORIDE) [Concomitant]
     Active Substance: OXYCODONE HYDROCHLORIDE
     Indication: CANCER PAIN
     Dosage: DF
     Dates: end: 20150902
  2. TAPENTA (TAPENTADOL) [Suspect]
     Active Substance: TAPENTADOL HYDROCHLORIDE
     Indication: CANCER PAIN
     Route: 048
     Dates: start: 20150903, end: 20150908

REACTIONS (1)
  - Delirium [Recovered/Resolved]

NARRATIVE: CASE EVENT DATE: 20150905
